FAERS Safety Report 7112169-9 (Version None)
Quarter: 2010Q4

REPORT INFORMATION
  Report Type: 
  Country: None (occurrence: None)
  Receive Date: 20101119
  Receipt Date: 20100128
  Transmission Date: 20110411
  Serious: No
  Sender: FDA-Public Use
  Company Number: A0841870A

PATIENT
  Sex: Female

DRUGS (1)
  1. AVODART [Suspect]
     Indication: ACCIDENTAL EXPOSURE
     Route: 065
     Dates: start: 20100128, end: 20100128

REACTIONS (1)
  - ACCIDENTAL EXPOSURE [None]
